FAERS Safety Report 10550417 (Version 1)
Quarter: 2014Q4

REPORT INFORMATION
  Report Type: Spontaneous
  Country: US (occurrence: US)
  Receive Date: 20141029
  Receipt Date: 20141029
  Transmission Date: 20150529
  Serious: No
  Sender: FDA-Public Use
  Company Number: US-TEVA-447037USA

PATIENT

DRUGS (3)
  1. PROVIGIL [Suspect]
     Active Substance: MODAFINIL
     Dosage: 200 MG FROM DAY 28
  2. PROVIGIL [Suspect]
     Active Substance: MODAFINIL
     Dosage: 100 MG FROM DAY 14 TO DAY 27
  3. PROVIGIL [Suspect]
     Active Substance: MODAFINIL
     Dosage: 50 MG FROM DAY-0 TO DAY 13

REACTIONS (7)
  - Dyspepsia [Unknown]
  - Arthralgia [Unknown]
  - Diarrhoea [Unknown]
  - Hypotension [Unknown]
  - Rash [Unknown]
  - Neck pain [Unknown]
  - Back pain [Unknown]
